FAERS Safety Report 20387184 (Version 1)
Quarter: 2022Q1

REPORT INFORMATION
  Report Type: Report from Study
  Country: FR (occurrence: FR)
  Receive Date: 20220127
  Receipt Date: 20220127
  Transmission Date: 20220423
  Serious: Yes (Other)
  Sender: FDA-Public Use
  Company Number: FR-BRISTOL-MYERS SQUIBB COMPANY-BMS-2022-000028

PATIENT
  Age: 29 Year
  Sex: Female
  Weight: 51 kg

DRUGS (4)
  1. NIVOLUMAB [Suspect]
     Active Substance: NIVOLUMAB
     Indication: Malignant melanoma
     Dosage: 156 MILLIGRAM
     Route: 042
     Dates: start: 20211210, end: 20220118
  2. IPILIMUMAB [Suspect]
     Active Substance: IPILIMUMAB
     Indication: Malignant melanoma
     Dosage: 52 MILLIGRAM, Q3WK
     Route: 042
     Dates: start: 20211210, end: 20220118
  3. ENCORAFENIB [Suspect]
     Active Substance: ENCORAFENIB
     Indication: Malignant melanoma
     Dosage: 300 MILLIGRAM, QD
     Route: 048
     Dates: start: 20210909, end: 20220118
  4. BINIMETINIB [Suspect]
     Active Substance: BINIMETINIB
     Indication: Malignant melanoma
     Dosage: 60 MILLIGRAM, BID
     Route: 048
     Dates: start: 20210909, end: 20220118

REACTIONS (3)
  - Immune-mediated hepatitis [Not Recovered/Not Resolved]
  - Hyperthyroidism [Not Recovered/Not Resolved]
  - Blood creatine phosphokinase increased [Not Recovered/Not Resolved]

NARRATIVE: CASE EVENT DATE: 20211227
